FAERS Safety Report 12967770 (Version 1)
Quarter: 2016Q4

REPORT INFORMATION
  Report Type: Spontaneous
  Country: US (occurrence: US)
  Receive Date: 20161123
  Receipt Date: 20161123
  Transmission Date: 20170207
  Serious: No
  Sender: FDA-Public Use
  Company Number: US-PFIZER INC-2016536509

PATIENT
  Sex: Female

DRUGS (1)
  1. XELJANZ XR [Suspect]
     Active Substance: TOFACITINIB CITRATE
     Dosage: 11 MG, UNK

REACTIONS (12)
  - Arthralgia [Unknown]
  - Joint swelling [Unknown]
  - Musculoskeletal stiffness [Unknown]
  - Balance disorder [Unknown]
  - Increased tendency to bruise [Unknown]
  - Palpitations [Unknown]
  - Sinus disorder [Unknown]
  - Pain in extremity [Unknown]
  - Asthenia [Unknown]
  - Local swelling [Unknown]
  - Sleep disorder [Unknown]
  - Hypersplenism [Unknown]
